FAERS Safety Report 7423039-0 (Version None)
Quarter: 2011Q2

REPORT INFORMATION
  Report Type: 
  Country: None (occurrence: None)
  Receive Date: 20110419
  Receipt Date: 20110413
  Transmission Date: 20111010
  Serious: Yes (Hospitalization)
  Sender: FDA-Public Use
  Company Number: IE-MEDIMMUNE-MEDI-0013072

PATIENT
  Sex: Male

DRUGS (4)
  1. CAPTOPRIL [Concomitant]
  2. SPIRONOLACTONE [Concomitant]
  3. SYNAGIS [Suspect]
     Indication: HEART DISEASE CONGENITAL
     Route: 030
     Dates: start: 20101215, end: 20110301
  4. FUROSEMIDE [Concomitant]

REACTIONS (2)
  - INFECTION [None]
  - NASOPHARYNGITIS [None]
